FAERS Safety Report 6184240-X (Version None)
Quarter: 2009Q2

REPORT INFORMATION
  Report Type: 
  Country: None (occurrence: None)
  Receive Date: 20090508
  Receipt Date: 20090505
  Transmission Date: 20091009
  Serious: Yes (Other)
  Sender: FDA-Public Use
  Company Number: FR-WYE-G03278809

PATIENT
  Sex: Female
  Weight: 78 kg

DRUGS (4)
  1. EFFEXOR [Suspect]
     Indication: BIPOLAR I DISORDER
     Dosage: 300 MG TOTAL DAILY
     Route: 048
     Dates: start: 20051001, end: 20090101
  2. EFFEXOR [Suspect]
     Route: 048
     Dates: start: 20090101, end: 20090301
  3. LAROXYL [Concomitant]
     Dosage: 50 MG TOTAL DAILY
     Route: 048
     Dates: start: 20060601, end: 20090301
  4. TERALITHE [Suspect]
     Dosage: 1600 MG TOTAL DAILY
     Route: 048
     Dates: start: 20051001, end: 20090301

REACTIONS (3)
  - CONGESTIVE CARDIOMYOPATHY [None]
  - ELECTROCARDIOGRAM ST SEGMENT DEPRESSION [None]
  - MANIA [None]
